FAERS Safety Report 9234080 (Version 1)
Quarter: 2013Q2

REPORT INFORMATION
  Report Type: Spontaneous
  Country: FR (occurrence: FR)
  Receive Date: 20130416
  Receipt Date: 20130416
  Transmission Date: 20140414
  Serious: Yes (Hospitalization)
  Sender: FDA-Public Use
  Company Number: FR-ROCHE-1214467

PATIENT
  Age: 86 Year
  Sex: Female

DRUGS (17)
  1. TAMIFLU [Suspect]
     Indication: PROPHYLAXIS
     Route: 048
     Dates: start: 20130223, end: 20130226
  2. TRIATEC [Suspect]
     Indication: MYOCARDIAL INFARCTION
     Route: 048
     Dates: start: 20130112, end: 20130220
  3. TARDYFERON [Suspect]
     Indication: IRON DEFICIENCY
     Route: 048
     Dates: start: 20130201, end: 20130220
  4. UVEDOSE [Suspect]
     Indication: VITAMIN D DEFICIENCY
     Route: 048
     Dates: start: 20130214, end: 20130214
  5. NORFLOXACINE [Concomitant]
     Indication: URINARY TRACT INFECTION
     Route: 048
  6. KARDEGIC [Concomitant]
     Indication: MYOCARDIAL INFARCTION
     Route: 065
     Dates: start: 20130110
  7. PLAVIX [Concomitant]
     Indication: MYOCARDIAL INFARCTION
     Route: 065
     Dates: start: 20130110
  8. CARDENSIEL [Concomitant]
     Route: 065
     Dates: start: 20130112
  9. TANGANIL [Concomitant]
     Route: 065
  10. LEXOMIL [Concomitant]
     Route: 065
  11. TIORFAN [Concomitant]
     Indication: DIARRHOEA
     Route: 065
     Dates: end: 20130212
  12. BETASERC [Concomitant]
     Dosage: 1 TO 2 DF DAILY
     Route: 065
  13. SIMVASTATINE [Concomitant]
     Route: 065
  14. INEXIUM [Concomitant]
     Route: 065
  15. DAFALGAN [Concomitant]
     Route: 065
     Dates: start: 20130218
  16. DIFFU K [Concomitant]
     Route: 065
     Dates: start: 20130201
  17. LASILIX [Concomitant]
     Route: 065
     Dates: start: 20130212

REACTIONS (3)
  - Neutropenia [Not Recovered/Not Resolved]
  - Rhinorrhoea [Not Recovered/Not Resolved]
  - Pyrexia [Not Recovered/Not Resolved]
